FAERS Safety Report 12254829 (Version 3)
Quarter: 2016Q2

REPORT INFORMATION
  Report Type: Spontaneous
  Country: JP (occurrence: JP)
  Receive Date: 20160411
  Receipt Date: 20160510
  Transmission Date: 20160815
  Serious: Yes (Other)
  Sender: FDA-Public Use
  Company Number: JP-WATSON-2016-07277

PATIENT
  Age: 74 Year
  Sex: Male

DRUGS (2)
  1. ETOPOSIDE (UNKNOWN) [Suspect]
     Active Substance: ETOPOSIDE
     Indication: HYPOPHARYNGEAL CANCER
     Dosage: UNK
     Route: 065
  2. CISPLATIN (UNKNOWN) [Suspect]
     Active Substance: CISPLATIN
     Indication: HYPOPHARYNGEAL CANCER
     Dosage: UNK
     Route: 065

REACTIONS (1)
  - Bone marrow failure [Unknown]
